FAERS Safety Report 8839841 (Version 1)
Quarter: 2012Q4

REPORT INFORMATION
  Report Type: 
  Country: US (occurrence: US)
  Receive Date: 20121015
  Receipt Date: 20121015
  Transmission Date: 20130627
  Serious: Yes (Hospitalization)
  Sender: FDA-Public Use
  Company Number: US-BRISTOL-MYERS SQUIBB COMPANY-16670788

PATIENT
  Age: 68 Year
  Sex: Female

DRUGS (1)
  1. KENALOG-40 INJ [Suspect]

REACTIONS (1)
  - Bacterial infection [Unknown]
